FAERS Safety Report 11265450 (Version 1)
Quarter: 2015Q3

REPORT INFORMATION
  Report Type: Spontaneous
  Country: IE (occurrence: IE)
  Receive Date: 20150713
  Receipt Date: 20150713
  Transmission Date: 20151125
  Serious: Yes (Other)
  Sender: FDA-Public Use
  Company Number: IE-ACTAVIS-2015-14031

PATIENT
  Age: 44 Year
  Sex: Male

DRUGS (2)
  1. CISPLATIN (UNKNOWN) [Suspect]
     Active Substance: CISPLATIN
     Indication: SEMINOMA
     Dosage: 4 CYCLES, CUMULATIVE DOSE 400 MG/M2
     Route: 065
  2. ETOPOSIDE (UNKNOWN) [Suspect]
     Active Substance: ETOPOSIDE
     Indication: SEMINOMA
     Dosage: 4 CYCLES
     Route: 065

REACTIONS (1)
  - Venous thrombosis limb [Unknown]
